FAERS Safety Report 5383037-8 (Version None)
Quarter: 2007Q3

REPORT INFORMATION
  Report Type: 
  Country: None (occurrence: None)
  Receive Date: 20070710
  Receipt Date: 20070627
  Transmission Date: 20080115
  Serious: Yes (Other)
  Sender: FDA-Public Use
  Company Number: CA-GENENTECH-239318

PATIENT
  Age: 49 Year
  Sex: Female

DRUGS (1)
  1. EFALIZUMAB [Suspect]
     Indication: PSORIASIS

REACTIONS (4)
  - ALANINE AMINOTRANSFERASE INCREASED [None]
  - ASPARTATE AMINOTRANSFERASE INCREASED [None]
  - B-CELL LYMPHOMA [None]
  - CHRONIC LYMPHOCYTIC LEUKAEMIA [None]
